FAERS Safety Report 8879735 (Version 2)
Quarter: 2012Q4

REPORT INFORMATION
  Report Type: Report from Study
  Country: US (occurrence: US)
  Receive Date: 20121031
  Receipt Date: 20121228
  Transmission Date: 20130627
  Serious: Yes (Other)
  Sender: FDA-Public Use
  Company Number: US-US-EMD SERONO, INC.-7170404

PATIENT
  Age: 47 Year
  Sex: Female

DRUGS (6)
  1. REBIF [Suspect]
     Indication: MULTIPLE SCLEROSIS
     Dates: start: 200807, end: 2011
  2. REBIF [Suspect]
     Route: 058
     Dates: start: 20120305
  3. REBIF [Suspect]
     Route: 058
  4. LIPITOR [Concomitant]
     Indication: BLOOD CHOLESTEROL INCREASED
     Route: 048
     Dates: end: 20121024
  5. TYLENOL [Concomitant]
     Indication: PREMEDICATION
  6. HEART PACK WITH FISH OIL [Concomitant]
     Indication: PRODUCT USED FOR UNKNOWN INDICATION

REACTIONS (5)
  - Uterine leiomyoma [Recovered/Resolved]
  - Fibrocystic breast disease [Unknown]
  - Menorrhagia [Recovered/Resolved]
  - Chills [Recovering/Resolving]
  - Hepatic enzyme increased [Recovered/Resolved]
